FAERS Safety Report 5328621-2 (Version None)
Quarter: 2007Q2

REPORT INFORMATION
  Report Type: 
  Country: None (occurrence: None)
  Receive Date: 20070514
  Receipt Date: 20070427
  Transmission Date: 20071010
  Serious: Yes (Other)
  Sender: FDA-Public Use
  Company Number: 2007EU000905

PATIENT
  Sex: Female

DRUGS (1)
  1. PROGRAF [Suspect]
     Dosage: %/D, TOP
     Route: 061

REACTIONS (2)
  - GINGIVITIS ULCERATIVE [None]
  - STOMATITIS [None]
